FAERS Safety Report 13898689 (Version 1)
Quarter: 2017Q3

REPORT INFORMATION
  Report Type: Spontaneous
  Country: US (occurrence: US)
  Receive Date: 20170823
  Receipt Date: 20170823
  Transmission Date: 20171127
  Serious: Yes (Hospitalization, Other)
  Sender: FDA-Public Use
  Company Number: US-UCBSA-2017032461

PATIENT
  Age: 28 Year
  Sex: Female
  Weight: 55.5 kg

DRUGS (21)
  1. LACOSAMIDE. [Suspect]
     Active Substance: LACOSAMIDE
     Indication: GENERALISED TONIC-CLONIC SEIZURE
     Dosage: UNKNOWN DOSE
  2. LACOSAMIDE. [Suspect]
     Active Substance: LACOSAMIDE
     Dosage: 200 MG, 2X/DAY (BID)
  3. METHADONE [Concomitant]
     Active Substance: METHADONE HYDROCHLORIDE
     Indication: ENCEPHALITIS AUTOIMMUNE
     Dosage: 15 MG, 4X/DAY (QID)
  4. RITUXIMAB. [Concomitant]
     Active Substance: RITUXIMAB
     Dosage: 600 MG, WEEKLY (QW)
     Route: 042
  5. MORPHINE [Concomitant]
     Active Substance: MORPHINE
     Dosage: 4 MG
     Route: 008
  6. BROMOCRIPTINE [Concomitant]
     Active Substance: BROMOCRIPTINE
     Indication: ENCEPHALITIS AUTOIMMUNE
     Dosage: 10 MG, 3X/DAY (TID)
  7. METHADONE [Concomitant]
     Active Substance: METHADONE HYDROCHLORIDE
     Dosage: 2.5 MG
     Route: 042
  8. CYCLOPHOSPHAMIDE. [Concomitant]
     Active Substance: CYCLOPHOSPHAMIDE
     Indication: TERATOMA
     Dosage: 750 MG/M2
  9. MORPHINE [Concomitant]
     Active Substance: MORPHINE
     Indication: EPIDURAL ANAESTHESIA
     Dosage: 300 MICROGRAM
     Route: 008
  10. IMMUNOGLOBULIN IV [Concomitant]
     Active Substance: HUMAN IMMUNOGLOBULIN G
     Indication: PRODUCT USED FOR UNKNOWN INDICATION
     Dosage: UNKNOWN DOSE (GIVEN FOR 5 DAYS)
     Route: 042
  11. CLONIDINE. [Concomitant]
     Active Substance: CLONIDINE
     Indication: ENCEPHALITIS AUTOIMMUNE
     Dosage: 0.2 MG, 2X/DAY (BID)
  12. FENTANYL. [Concomitant]
     Active Substance: FENTANYL
     Indication: ANAESTHESIA
     Dosage: 10 MICROGRAM
     Route: 008
  13. METHYLPREDNISOLONE. [Concomitant]
     Active Substance: METHYLPREDNISOLONE
     Indication: PRODUCT USED FOR UNKNOWN INDICATION
     Dosage: 1000 MG DAILY DOSE (GIVEN FOR 5 DAYS)
  14. BUPIVACAINE. [Concomitant]
     Active Substance: BUPIVACAINE
     Dosage: 0.5% IN 20 ML
     Route: 008
  15. LEVETIRACETAM. [Suspect]
     Active Substance: LEVETIRACETAM
     Dosage: 1500 MG, 2X/DAY (BID)
  16. BUPIVACAINE. [Concomitant]
     Active Substance: BUPIVACAINE
     Dosage: 0.5% AT 5 ML/HOUR
  17. MORPHINE [Concomitant]
     Active Substance: MORPHINE
     Dosage: ADDITIONAL 2 MG
     Route: 008
  18. LEVETIRACETAM. [Suspect]
     Active Substance: LEVETIRACETAM
     Indication: GENERALISED TONIC-CLONIC SEIZURE
     Dosage: 500 MG, 2X/DAY (BID)
  19. RITUXIMAB. [Concomitant]
     Active Substance: RITUXIMAB
     Indication: TERATOMA
     Dosage: 375 MG/M2 FOR FOUR DOSES
  20. BETAMETHASONE. [Concomitant]
     Active Substance: BETAMETHASONE
     Indication: MATERNAL THERAPY TO ENHANCE FOETAL LUNG MATURITY
     Dosage: UNKNOWN DOSE
  21. BUPIVACAINE. [Concomitant]
     Active Substance: BUPIVACAINE
     Indication: ANAESTHESIA
     Dosage: 0.75% HYOBARIC BUPIVACAINE 20 ML
     Route: 008

REACTIONS (9)
  - Insomnia [Unknown]
  - Premature delivery [Unknown]
  - Malnutrition [Unknown]
  - Catatonia [Unknown]
  - Status epilepticus [Recovering/Resolving]
  - Autonomic nervous system imbalance [Unknown]
  - Agitation [Unknown]
  - Cognitive disorder [Not Recovered/Not Resolved]
  - Exposure during pregnancy [Unknown]
